FAERS Safety Report 6790257-4 (Version None)
Quarter: 2010Q2

REPORT INFORMATION
  Report Type: 
  Country: None (occurrence: None)
  Receive Date: 20100624
  Receipt Date: 20100618
  Transmission Date: 20101027
  Serious: No
  Sender: FDA-Public Use
  Company Number: US-JNJFOC-20100606640

PATIENT
  Sex: Male

DRUGS (1)
  1. INVEGA SUSTENNA [Suspect]
     Indication: SCHIZOPHRENIA
     Route: 030

REACTIONS (5)
  - DYSPNOEA [None]
  - HEART RATE ABNORMAL [None]
  - INJECTION SITE NODULE [None]
  - INJECTION SITE PAIN [None]
  - PAIN [None]
